FAERS Safety Report 16650679 (Version 1)
Quarter: 2019Q3

REPORT INFORMATION
  Report Type: Report from Study
  Country: None (occurrence: BR)
  Receive Date: 20190731
  Receipt Date: 20190731
  Transmission Date: 20191004
  Serious: Yes (Other)
  Sender: FDA-Public Use
  Company Number: BR-ABBVIE-19K-020-2870071-00

PATIENT
  Sex: Female
  Weight: 64.5 kg

DRUGS (1)
  1. HUMIRA [Suspect]
     Active Substance: ADALIMUMAB
     Indication: RHEUMATOID ARTHRITIS
     Route: 058
     Dates: start: 20190114

REACTIONS (5)
  - Trichorrhexis [Unknown]
  - Hysterectomy [Recovered/Resolved]
  - Alopecia [Not Recovered/Not Resolved]
  - Cataract [Recovered/Resolved]
  - Glaucoma [Unknown]

NARRATIVE: CASE EVENT DATE: 2019
